FAERS Safety Report 7237322-5 (Version None)
Quarter: 2011Q1

REPORT INFORMATION
  Report Type: 
  Country: None (occurrence: None)
  Receive Date: 20110121
  Receipt Date: 20110117
  Transmission Date: 20110831
  Serious: Yes (Hospitalization)
  Sender: FDA-Public Use
  Company Number: JP-AMGEN-US445376

PATIENT

DRUGS (10)
  1. AMLODIPINE BESYLATE [Concomitant]
     Dosage: 5 MG, QD
     Route: 048
  2. AMPIROXICAM [Concomitant]
     Dosage: 55 MG, QD
     Route: 048
  3. JUVELA [Concomitant]
     Dosage: 9 UNK, QD
     Route: 048
  4. ALLORINE [Concomitant]
     Dosage: 1 UNK, QD
     Route: 048
  5. HYDANTOL [Concomitant]
     Dosage: 4 UNK, QD
     Route: 048
  6. PREDNISOLONE [Suspect]
     Dosage: 1 MG, QD
     Route: 048
  7. FAMOTIDINE [Concomitant]
     Dosage: 4 UNK, QD
     Route: 048
  8. PANALDINE [Concomitant]
     Dosage: 400 MG, QD
     Route: 048
  9. ENBREL [Suspect]
     Indication: RHEUMATOID ARTHRITIS
     Dosage: 50 MG, QWK
     Route: 058
  10. ALENDRONATE SODIUM [Concomitant]
     Dosage: 35 MG, QWK
     Route: 048

REACTIONS (1)
  - ENCEPHALITIS [None]
